FAERS Safety Report 7571700-X (Version None)
Quarter: 2011Q2

REPORT INFORMATION
  Report Type: 
  Country: None (occurrence: None)
  Receive Date: 20110624
  Receipt Date: 20110615
  Transmission Date: 20111010
  Serious: Yes (Hospitalization)
  Sender: FDA-Public Use
  Company Number: IT-JNJFOC-20110407324

PATIENT
  Sex: Male
  Weight: 63 kg

DRUGS (5)
  1. METHOTREXATE [Concomitant]
     Route: 030
     Dates: start: 20030901
  2. TORVAST [Concomitant]
     Route: 048
     Dates: start: 20010101
  3. ALENDROS [Concomitant]
     Route: 048
     Dates: start: 20020101
  4. CARVEDILOLO [Concomitant]
     Route: 048
     Dates: start: 20110208
  5. GOLIMUMAB [Suspect]
     Indication: RHEUMATOID ARTHRITIS
     Route: 058
     Dates: start: 20101014, end: 20110311

REACTIONS (3)
  - CARDIAC FAILURE CONGESTIVE [None]
  - PULMONARY HYPERTENSION [None]
  - PNEUMONIA [None]
